FAERS Safety Report 15907933 (Version 2)
Quarter: 2019Q1

REPORT INFORMATION
  Report Type: Report from Study
  Country: IT (occurrence: IT)
  Receive Date: 20190204
  Receipt Date: 20190211
  Transmission Date: 20190417
  Serious: Yes (Other)
  Sender: FDA-Public Use
  Company Number: IT-AMREGENT-20190174

PATIENT
  Age: 34 Year
  Sex: Female

DRUGS (1)
  1. FERINJECT [Suspect]
     Active Substance: FERRIC CARBOXYMALTOSE
     Dosage: 500 MG, 1 IN 1 WK
     Route: 041
     Dates: start: 20160309, end: 20160316

REACTIONS (6)
  - Tongue oedema [Unknown]
  - Vision blurred [Unknown]
  - Cough [Unknown]
  - Rash [Unknown]
  - Infusion related reaction [Unknown]
  - Chest discomfort [Unknown]

NARRATIVE: CASE EVENT DATE: 20160316
